FAERS Safety Report 5833730-5 (Version None)
Quarter: 2008Q3

REPORT INFORMATION
  Report Type: 
  Country: None (occurrence: None)
  Receive Date: 20080804
  Receipt Date: 20080804
  Transmission Date: 20090109
  Serious: Yes (Hospitalization)
  Sender: FDA-Public Use
  Company Number: None

PATIENT
  Age: 65 Year
  Sex: Female
  Weight: 121.82 kg

DRUGS (1)
  1. FENTANYL-25 [Suspect]
     Dosage: 25 MCG
     Dates: start: 20060112, end: 20080711

REACTIONS (1)
  - ANGIOEDEMA [None]
